FAERS Safety Report 6748990-6 (Version None)
Quarter: 2010Q2

REPORT INFORMATION
  Report Type: 
  Country: None (occurrence: None)
  Receive Date: 20100601
  Receipt Date: 20100526
  Transmission Date: 20101027
  Serious: Yes (Death, Hospitalization)
  Sender: FDA-Public Use
  Company Number: GR-ELI_LILLY_AND_COMPANY-GR201005004549

PATIENT
  Age: 63 Year
  Sex: Male
  Weight: 57 kg

DRUGS (5)
  1. ALIMTA [Suspect]
     Indication: LUNG ADENOCARCINOMA
     Dosage: UNK, UNKNOWN
     Route: 042
     Dates: start: 20100118, end: 20100322
  2. AVASTIN [Concomitant]
     Indication: LUNG ADENOCARCINOMA
     Dates: start: 20100118, end: 20100322
  3. CARBOPLATIN [Concomitant]
     Indication: LUNG ADENOCARCINOMA
     Dates: start: 20100118, end: 20100322
  4. VITAMIN B-12 [Concomitant]
  5. FOLIC ACID [Concomitant]

REACTIONS (1)
  - HAEMOLYTIC ANAEMIA [None]
